FAERS Safety Report 11116836 (Version 5)
Quarter: 2015Q4

REPORT INFORMATION
  Report Type: Report from Study
  Country: US (occurrence: US)
  Receive Date: 20150515
  Receipt Date: 20151109
  Transmission Date: 20160304
  Serious: Yes (Hospitalization)
  Sender: FDA-Public Use
  Company Number: US-ACTELION-A-US2015-117792

PATIENT
  Age: 38 Year
  Sex: Female

DRUGS (5)
  1. RIFAMPIN. [Suspect]
     Active Substance: RIFAMPIN
     Indication: PRODUCT USED FOR UNKNOWN INDICATION
     Route: 065
  2. MACITENTAN [Suspect]
     Active Substance: MACITENTAN
     Indication: PULMONARY ARTERIAL HYPERTENSION
     Dosage: 10 MG, QD
     Route: 048
     Dates: start: 20140731
  3. RIOCIGUAT [Concomitant]
     Active Substance: RIOCIGUAT
  4. REVATIO [Concomitant]
     Active Substance: SILDENAFIL CITRATE
  5. COUMADIN [Concomitant]
     Active Substance: WARFARIN SODIUM

REACTIONS (17)
  - Respiratory arrest [Unknown]
  - Cellulitis [Unknown]
  - Amnesia [Unknown]
  - Chromaturia [Unknown]
  - Pyrexia [Unknown]
  - Laceration [Unknown]
  - Malaise [Unknown]
  - Pneumonia [Unknown]
  - Fall [Unknown]
  - Pulmonary pain [Unknown]
  - Blood potassium decreased [Unknown]
  - Loss of consciousness [Unknown]
  - Swelling [Unknown]
  - Rheumatoid arthritis [Unknown]
  - Diarrhoea [Unknown]
  - Faeces discoloured [Unknown]
  - Wound infection [Unknown]
